FAERS Safety Report 17263882 (Version 1)
Quarter: 2020Q1

REPORT INFORMATION
  Report Type: Spontaneous
  Country: FR (occurrence: FR)
  Receive Date: 20200113
  Receipt Date: 20200113
  Transmission Date: 20200409
  Serious: Yes (Hospitalization)
  Sender: FDA-Public Use
  Company Number: FR-009507513-2001FRA001823

PATIENT
  Age: 93 Year
  Sex: Male
  Weight: 55 kg

DRUGS (11)
  1. COUMADINE [Concomitant]
     Active Substance: WARFARIN SODIUM
     Dosage: 1 MILLIGRAM, QD
     Route: 048
  2. UVEDOSE [Concomitant]
     Active Substance: CHOLECALCIFEROL
     Dosage: UNK
     Route: 048
  3. INVANZ [Suspect]
     Active Substance: ERTAPENEM SODIUM
     Indication: SEPSIS
     Dosage: 1 GRAM, QD, POWDER FOR SOLUTION TO DILUTE FOR INFUSION
     Route: 058
     Dates: start: 20191209, end: 20191217
  4. GUTRON [Suspect]
     Active Substance: MIDODRINE
     Indication: HYPOTENSION
     Dosage: 1.25 MILLIGRAM, QD
     Route: 058
     Dates: start: 20191210, end: 20191218
  5. LACTULOSE. [Concomitant]
     Active Substance: LACTULOSE
     Dosage: UNK
     Route: 048
  6. DUTASTERIDE. [Concomitant]
     Active Substance: DUTASTERIDE
     Dosage: 0.5 MILLIGRAM, QD
     Route: 048
  7. LANTUS [Concomitant]
     Active Substance: INSULIN GLARGINE
     Dosage: 20 INTERNATIONAL UNIT, QD
     Route: 058
  8. MODOPAR [Concomitant]
     Active Substance: BENSERAZIDE HYDROCHLORIDE\LEVODOPA
     Dosage: UNK
     Route: 048
  9. DICLOFENAC [Concomitant]
     Active Substance: DICLOFENAC
     Dosage: UNK
     Route: 003
  10. ACETAMINOPHEN. [Concomitant]
     Active Substance: ACETAMINOPHEN
     Dosage: UNK
     Route: 048
  11. NOVORAPID [Concomitant]
     Active Substance: INSULIN ASPART
     Dosage: 10 INTERNATIONAL UNIT, QD
     Route: 058

REACTIONS (2)
  - Hallucination [Recovered/Resolved]
  - Confusional state [Not Recovered/Not Resolved]

NARRATIVE: CASE EVENT DATE: 20191217
